FAERS Safety Report 8492749 (Version 2)
Quarter: 2012Q4

REPORT INFORMATION
  Report Type: Report from Study
  Country: US (occurrence: US)
  Receive Date: 20120403
  Receipt Date: 20121016
  Transmission Date: 20130627
  Serious: Yes (Hospitalization)
  Sender: FDA-Public Use
  Company Number: US-ROCHE-1054990

PATIENT
  Age: 86 Year
  Sex: Female
  Weight: 52.3 kg

DRUGS (18)
  1. VISMODEGIB [Suspect]
     Indication: PANCREATIC CARCINOMA METASTATIC
     Dosage: LAST DOSE PRIOIR TO SAE 20/MAR/2012
     Route: 065
     Dates: start: 20120306
  2. GEMCITABINE [Suspect]
     Indication: PANCREATIC CARCINOMA METASTATIC
     Dosage: LAST DOSE PRIOIR TO SAE 20/MAR/2012
     Route: 065
     Dates: start: 20120207
  3. PACLITAXEL [Suspect]
     Indication: PANCREATIC CARCINOMA METASTATIC
     Dosage: LAST DOSE PRIOIR TO SAE 20/MAR/2012
     Route: 065
     Dates: start: 20120207
  4. METFORMIN [Concomitant]
     Indication: HYPERGLYCAEMIA
     Route: 048
     Dates: start: 20090603
  5. SIMVASTATIN [Concomitant]
     Indication: HYPERLIPIDAEMIA
     Route: 048
     Dates: start: 20010602
  6. BABY ASPIRIN [Concomitant]
     Route: 048
     Dates: start: 19930605, end: 20120308
  7. VITAMIN B12 [Concomitant]
     Route: 048
     Dates: start: 19930605
  8. POTASSIUM [Concomitant]
     Route: 048
     Dates: start: 19930605
  9. VITAMIN C [Concomitant]
     Route: 048
     Dates: start: 19930605
  10. ALENDRONATE [Concomitant]
     Route: 048
     Dates: start: 19900601
  11. HUMULIN N [Concomitant]
     Indication: HYPERGLYCAEMIA
     Route: 058
  12. PRANDIN [Concomitant]
     Indication: HYPERGLYCAEMIA
     Route: 048
     Dates: start: 20090603, end: 20120803
  13. COMPAZINE [Concomitant]
     Indication: NAUSEA
     Route: 048
  14. ZOFRAN [Concomitant]
     Route: 042
  15. DEXAMETHASONE [Concomitant]
     Route: 042
  16. BACTRIM DS [Concomitant]
     Indication: URINARY TRACT INFECTION
     Route: 048
     Dates: start: 20120404, end: 20120411
  17. CEFEPIME [Concomitant]
     Indication: PYREXIA
     Route: 042
     Dates: start: 20120328, end: 20120329
  18. LOVENOX [Concomitant]
     Indication: PROPHYLAXIS
     Route: 058
     Dates: start: 20120329, end: 20120329

REACTIONS (1)
  - Pyrexia [Recovered/Resolved]
